FAERS Safety Report 20427104 (Version 1)
Quarter: 2022Q1

REPORT INFORMATION
  Report Type: Report from Study
  Country: US (occurrence: US)
  Receive Date: 20220204
  Receipt Date: 20220204
  Transmission Date: 20220423
  Serious: No
  Sender: FDA-Public Use
  Company Number: US-EXELIXIS-CABO-21043097

PATIENT
  Age: 77 Year
  Sex: Male

DRUGS (3)
  1. CABOMETYX [Suspect]
     Active Substance: CABOZANTINIB S-MALATE
     Indication: Renal cell carcinoma
     Dosage: 40 MG, QD
     Dates: start: 20210715
  2. CABOMETYX [Suspect]
     Active Substance: CABOZANTINIB S-MALATE
     Dosage: 40 MG, QD
  3. CABOMETYX [Suspect]
     Active Substance: CABOZANTINIB S-MALATE
     Dosage: 40 MG, QD

REACTIONS (13)
  - Anal incontinence [Recovered/Resolved]
  - Paraesthesia [Not Recovered/Not Resolved]
  - Melanocytic naevus [Unknown]
  - Dry skin [Not Recovered/Not Resolved]
  - Dysphonia [Not Recovered/Not Resolved]
  - Stomatitis [Recovered/Resolved]
  - Taste disorder [Not Recovered/Not Resolved]
  - Pain in extremity [Not Recovered/Not Resolved]
  - Nausea [Not Recovered/Not Resolved]
  - Weight decreased [Recovered/Resolved]
  - Blood pressure increased [Recovered/Resolved]
  - Malignant neoplasm progression [Unknown]
  - Product dose omission issue [Unknown]

NARRATIVE: CASE EVENT DATE: 20210801
